FAERS Safety Report 14915414 (Version 3)
Quarter: 2018Q3

REPORT INFORMATION
  Report Type: Spontaneous
  Country: US (occurrence: US)
  Receive Date: 20180518
  Receipt Date: 20180727
  Transmission Date: 20181010
  Serious: Yes (Hospitalization, Other)
  Sender: FDA-Public Use
  Company Number: US-ELI_LILLY_AND_COMPANY-US201805004087

PATIENT
  Age: 43 Year
  Sex: Female

DRUGS (3)
  1. LETAIRIS [Suspect]
     Active Substance: AMBRISENTAN
     Indication: PULMONARY HYPERTENSION
     Dosage: 5 MG, DAILY
     Route: 065
     Dates: start: 20131114, end: 201806
  2. PLAVIX [Concomitant]
     Active Substance: CLOPIDOGREL BISULFATE
     Indication: PRODUCT USED FOR UNKNOWN INDICATION
     Dosage: UNK, UNKNOWN
     Route: 065
  3. ADCIRCA [Suspect]
     Active Substance: TADALAFIL
     Indication: PULMONARY ARTERIAL HYPERTENSION
     Dosage: 20 MG, DAILY
     Route: 065
     Dates: start: 20161118, end: 201806

REACTIONS (11)
  - Blood pressure increased [Unknown]
  - Hyperhidrosis [Unknown]
  - Dyspnoea [Unknown]
  - Coronary artery occlusion [Unknown]
  - HIV infection [Not Recovered/Not Resolved]
  - Hypoaesthesia [Unknown]
  - Malaise [Not Recovered/Not Resolved]
  - Pain in extremity [Unknown]
  - Drug dose omission [Unknown]
  - Paraesthesia [Unknown]
  - Myocardial infarction [Unknown]

NARRATIVE: CASE EVENT DATE: 201804
